FAERS Safety Report 26123432 (Version 2)
Quarter: 2025Q4

REPORT INFORMATION
  Report Type: Spontaneous
  Country: CN (occurrence: CN)
  Receive Date: 20251204
  Receipt Date: 20251231
  Transmission Date: 20260117
  Serious: Yes (Other)
  Sender: ALKEM
  Company Number: CN-ALKEM LABORATORIES LIMITED-CN-ALKEM-2025-12948

PATIENT
  Age: 41 Year
  Sex: Male

DRUGS (15)
  1. ESOMEPRAZOLE MAGNESIUM [Interacting]
     Active Substance: ESOMEPRAZOLE MAGNESIUM
     Indication: Abdominal distension
     Dosage: 20 MILLIGRAM, HS
     Route: 048
  2. ESOMEPRAZOLE MAGNESIUM [Interacting]
     Active Substance: ESOMEPRAZOLE MAGNESIUM
     Indication: Abdominal pain
  3. VORICONAZOLE [Interacting]
     Active Substance: VORICONAZOLE
     Indication: Pneumonia
     Dosage: 400 MILLIGRAM, BID
     Route: 048
  4. Clozapine hydrochloride [Concomitant]
     Indication: Bipolar disorder
     Dosage: 25 MILLIGRAM, HS
     Route: 065
  5. Clozapine hydrochloride [Concomitant]
     Dosage: UNK
     Route: 065
  6. ENTECAVIR [Concomitant]
     Active Substance: ENTECAVIR
     Indication: Antiviral treatment
     Dosage: UNK
     Route: 048
  7. IMIPENEM AND CILASTATIN SODIUM [Concomitant]
     Active Substance: CILASTATIN SODIUM\IMIPENEM
     Indication: Pneumonia
     Dosage: 1000 MILLIGRAM, QID
     Route: 042
  8. LAMOTRIGINE [Concomitant]
     Active Substance: LAMOTRIGINE
     Indication: Bipolar disorder
     Dosage: 150 MILLIGRAM, HS
     Route: 065
  9. LAMOTRIGINE [Concomitant]
     Active Substance: LAMOTRIGINE
     Dosage: UNK
     Route: 065
  10. LITHIUM CARBONATE [Concomitant]
     Active Substance: LITHIUM CARBONATE
     Indication: Bipolar disorder
     Dosage: 0.3 GRAM, BID
     Route: 065
  11. LITHIUM CARBONATE [Concomitant]
     Active Substance: LITHIUM CARBONATE
     Dosage: UNK
     Route: 065
  12. Polyenes phosphatidylcholine [Concomitant]
     Indication: Hepatic failure
     Dosage: UNK
     Route: 042
  13. ADEMETIONINE [Concomitant]
     Active Substance: ADEMETIONINE
     Indication: Hepatic failure
     Dosage: UNK
     Route: 042
  14. VALPROATE SODIUM [Concomitant]
     Active Substance: VALPROATE SODIUM
     Indication: Bipolar disorder
     Dosage: 0.5 GRAM, BID
     Route: 065
  15. VALPROATE SODIUM [Concomitant]
     Active Substance: VALPROATE SODIUM
     Dosage: UNK
     Route: 065

REACTIONS (3)
  - Rhabdomyolysis [Recovered/Resolved]
  - Myopathy [Recovered/Resolved]
  - Drug interaction [Unknown]
